FAERS Safety Report 23556010 (Version 2)
Quarter: 2024Q1

REPORT INFORMATION
  Report Type: Spontaneous
  Country: IE (occurrence: IE)
  Receive Date: 20240222
  Receipt Date: 20240314
  Transmission Date: 20240409
  Serious: Yes (Death)
  Sender: FDA-Public Use
  Company Number: IE-BAYER-2024A026954

PATIENT
  Age: 74 Year
  Sex: Female

DRUGS (1)
  1. VENTAVIS [Suspect]
     Active Substance: ILOPROST
     Indication: Pulmonary hypertension
     Dosage: UNK UNK, 6ID
     Route: 055
     Dates: start: 2019, end: 2023

REACTIONS (1)
  - Death [Fatal]
